FAERS Safety Report 15010102 (Version 1)
Quarter: 2018Q2

REPORT INFORMATION
  Report Type: Spontaneous
  Country: US (occurrence: US)
  Receive Date: 20180614
  Receipt Date: 20180614
  Transmission Date: 20180711
  Serious: No
  Sender: FDA-Public Use
  Company Number: US-PFIZER INC-2016225871

PATIENT
  Age: 74 Year
  Sex: Male
  Weight: 119.27 kg

DRUGS (1)
  1. GABAPENTIN. [Suspect]
     Active Substance: GABAPENTIN
     Indication: DIABETIC NEUROPATHY
     Dosage: 1800 MG, DAILY (3 TABLETS DAILY)

REACTIONS (1)
  - Drug ineffective for unapproved indication [Unknown]
